FAERS Safety Report 8127712-0 (Version None)
Quarter: 2012Q1

REPORT INFORMATION
  Report Type: 
  Country: None (occurrence: None)
  Receive Date: 20120210
  Receipt Date: 20120202
  Transmission Date: 20120608
  Serious: Yes (Hospitalization)
  Sender: FDA-Public Use
  Company Number: US-SANOFI-AVENTIS-2012SA007479

PATIENT
  Sex: Female
  Weight: 42.4 kg

DRUGS (5)
  1. PACLITAXEL [Suspect]
     Indication: FALLOPIAN TUBE CANCER
     Dosage: OVER 3 HOURS ON DAY 1
     Route: 042
     Dates: start: 20110907, end: 20111115
  2. DOCETAXEL [Suspect]
     Indication: FALLOPIAN TUBE CANCER
     Dosage: SUBSTITUTED FOR PACLITAXEL AFTER REACTION DURING CYCLE 1 DAY 1
     Route: 065
  3. BEVACIZUMAB [Suspect]
     Indication: FALLOPIAN TUBE CANCER
     Dosage: OVER 30-90 MIN ON DAY 1
     Route: 042
     Dates: start: 20110907
  4. PACLITAXEL [Suspect]
     Dosage: ON DAY 8
     Route: 042
     Dates: start: 20110907, end: 20111115
  5. CISPLATIN [Suspect]
     Indication: FALLOPIAN TUBE CANCER
     Dosage: ON DAY 2
     Route: 033
     Dates: start: 20110907

REACTIONS (4)
  - FAILURE TO THRIVE [None]
  - ANXIETY [None]
  - CONFUSIONAL STATE [None]
  - HYPERTENSION [None]
